FAERS Safety Report 15858465 (Version 1)
Quarter: 2019Q1

REPORT INFORMATION
  Report Type: Spontaneous
  Country: US (occurrence: US)
  Receive Date: 20190123
  Receipt Date: 20190123
  Transmission Date: 20190417
  Serious: Yes (Life-Threatening, Hospitalization)
  Sender: FDA-Public Use
  Company Number: None

PATIENT
  Age: 63 Year
  Sex: Male
  Weight: 56.25 kg

DRUGS (5)
  1. DILAUDID [Concomitant]
     Active Substance: HYDROMORPHONE HYDROCHLORIDE
  2. OXYCONTIN [Concomitant]
     Active Substance: OXYCODONE HYDROCHLORIDE
  3. PANCREATIC ENZYMES [Concomitant]
     Active Substance: UNSPECIFIED INGREDIENT
  4. TYLENOL [Concomitant]
     Active Substance: ACETAMINOPHEN
  5. LANTUS SOLOSTAR [Suspect]
     Active Substance: INSULIN GLARGINE
     Indication: DIABETES MELLITUS
     Dosage: ?          OTHER STRENGTH:UNITS/ML;QUANTITY:35 UNITS;OTHER ROUTE:INJECTION INTO HIP TISSUE?
     Dates: start: 20181219

REACTIONS (3)
  - Confusional state [None]
  - Device defective [None]
  - Hypoglycaemic coma [None]

NARRATIVE: CASE EVENT DATE: 20181219
